FAERS Safety Report 6780396-6 (Version None)
Quarter: 2010Q2

REPORT INFORMATION
  Report Type: 
  Country: None (occurrence: None)
  Receive Date: 20100618
  Receipt Date: 20100610
  Transmission Date: 20101027
  Serious: Yes (Death, Hospitalization, Other)
  Sender: FDA-Public Use
  Company Number: FR-AMGEN-QUU417408

PATIENT
  Age: 89 Year
  Sex: Female

DRUGS (1)
  1. CINACALCET HYDROCHLORIDE [Suspect]
     Indication: HYPERPARATHYROIDISM PRIMARY
     Route: 048
     Dates: start: 20100201, end: 20100519

REACTIONS (5)
  - APHASIA [None]
  - CACHEXIA [None]
  - DEHYDRATION [None]
  - FALL [None]
  - WEIGHT DECREASED [None]
